FAERS Safety Report 5527065-8 (Version None)
Quarter: 2007Q4

REPORT INFORMATION
  Report Type: 
  Country: None (occurrence: None)
  Receive Date: 20071127
  Receipt Date: 20071123
  Transmission Date: 20080405
  Serious: Yes (Other)
  Sender: FDA-Public Use
  Company Number: AU-MERCK-0711AUS00131

PATIENT
  Sex: Female

DRUGS (1)
  1. FOSAMAX [Suspect]
     Route: 048
     Dates: start: 20010101

REACTIONS (3)
  - ARTHROPATHY [None]
  - BONE DENSITY DECREASED [None]
  - SPINAL FRACTURE [None]
